FAERS Safety Report 20727845 (Version 1)
Quarter: 2022Q2

REPORT INFORMATION
  Report Type: Spontaneous
  Country: CA (occurrence: CA)
  Receive Date: 20220419
  Receipt Date: 20220419
  Transmission Date: 20220721
  Serious: Yes (Death, Other)
  Sender: FDA-Public Use
  Company Number: CA-JNJFOC-20220431265

PATIENT
  Age: 42 Year
  Sex: Male

DRUGS (1)
  1. REMICADE [Suspect]
     Active Substance: INFLIXIMAB
     Indication: Crohn^s disease
     Route: 042

REACTIONS (14)
  - Death [Fatal]
  - Skin odour abnormal [Fatal]
  - Infusion site discomfort [Fatal]
  - Infusion site extravasation [Fatal]
  - Infusion site swelling [Fatal]
  - Dyspnoea [Fatal]
  - Hyperhidrosis [Fatal]
  - Feeling hot [Fatal]
  - Condition aggravated [Fatal]
  - Blood pressure systolic increased [Fatal]
  - Dizziness [Fatal]
  - Inappropriate schedule of product administration [Unknown]
  - Intentional product use issue [Unknown]
  - Off label use [Unknown]
